FAERS Safety Report 22951435 (Version 2)
Quarter: 2023Q4

REPORT INFORMATION
  Report Type: Report from Study
  Country: US (occurrence: US)
  Receive Date: 20230917
  Receipt Date: 20231122
  Transmission Date: 20240110
  Serious: Yes (Other)
  Sender: FDA-Public Use
  Company Number: US-ABBVIE-5405691

PATIENT
  Sex: Female

DRUGS (1)
  1. RINVOQ [Suspect]
     Active Substance: UPADACITINIB
     Indication: Rheumatoid arthritis
     Route: 048
     Dates: start: 20230401

REACTIONS (6)
  - Loss of consciousness [Unknown]
  - Blood pressure abnormal [Unknown]
  - Fall [Unknown]
  - Craniofacial fracture [Unknown]
  - COVID-19 [Unknown]
  - Hand fracture [Unknown]

NARRATIVE: CASE EVENT DATE: 20230101
